FAERS Safety Report 4876297-0 (Version None)
Quarter: 2005Q4

REPORT INFORMATION
  Report Type: 
  Country: None (occurrence: None)
  Receive Date: 20051206
  Receipt Date: 20050805
  Transmission Date: 20060501
  Serious: No
  Sender: FDA-Public Use
  Company Number: USA0508104723

PATIENT
  Age: 9 Year

DRUGS (2)
  1. STRATTERA [Suspect]
     Dosage: 60 MG
  2. CYMBALTA [Suspect]

REACTIONS (3)
  - ABDOMINAL PAIN UPPER [None]
  - HEADACHE [None]
  - MEDICATION ERROR [None]
